FAERS Safety Report 13835152 (Version 1)
Quarter: 2017Q3

REPORT INFORMATION
  Report Type: Spontaneous
  Country: CN (occurrence: CN)
  Receive Date: 20170804
  Receipt Date: 20170804
  Transmission Date: 20171127
  Serious: Yes (Death)
  Sender: FDA-Public Use
  Company Number: CN-ASTELLAS-2017US031106

PATIENT
  Age: 58 Year
  Sex: Female

DRUGS (9)
  1. INTERFERON ALFA NOS [Concomitant]
     Active Substance: INTERFERON ALFA-2A OR INTERFERON ALFA-2B
     Indication: GLOMERULONEPHRITIS MEMBRANOPROLIFERATIVE
  2. PREDNISOLONE. [Concomitant]
     Active Substance: PREDNISOLONE
     Indication: GLOMERULONEPHRITIS MEMBRANOPROLIFERATIVE
     Dosage: UNK UNK, UNKNOWN FREQ.
     Route: 048
  3. MICAFUNGIN [Suspect]
     Active Substance: MICAFUNGIN
     Indication: ANTIINFLAMMATORY THERAPY
     Dosage: 0.15 G, ONCE DAILY
     Route: 042
  4. LINEZOLID. [Concomitant]
     Active Substance: LINEZOLID
     Indication: ANTIINFLAMMATORY THERAPY
     Dosage: 0.6 G, TWICE DAILY
     Route: 042
  5. PREDNISOLONE. [Concomitant]
     Active Substance: PREDNISOLONE
     Indication: HEPATITIS C
  6. INTERFERON ALFA NOS [Concomitant]
     Active Substance: INTERFERON ALFA-2A OR INTERFERON ALFA-2B
     Indication: HEPATITIS C
  7. MEROPENEM. [Concomitant]
     Active Substance: MEROPENEM
     Indication: ANTIINFLAMMATORY THERAPY
     Route: 042
  8. PREDNISOLONE. [Concomitant]
     Active Substance: PREDNISOLONE
     Indication: CRYOGLOBULINAEMIA
     Route: 048
  9. INTERFERON ALFA NOS [Concomitant]
     Active Substance: INTERFERON ALFA-2A OR INTERFERON ALFA-2B
     Indication: CRYOGLOBULINAEMIA
     Route: 058
     Dates: start: 20121219, end: 20130130

REACTIONS (1)
  - Multiple organ dysfunction syndrome [Fatal]
